FAERS Safety Report 8257554-7 (Version None)
Quarter: 2012Q2

REPORT INFORMATION
  Report Type: 
  Country: None (occurrence: None)
  Receive Date: 20120403
  Receipt Date: 20120320
  Transmission Date: 20120825
  Serious: Yes (Hospitalization, Other)
  Sender: FDA-Public Use
  Company Number: DE-AMGEN-DEUSP2011040553

PATIENT
  Age: 53 Year
  Sex: Female
  Weight: 65 kg

DRUGS (1)
  1. ETANERCEPT [Suspect]
     Indication: PSORIASIS
     Dosage: 50 MG, UNK
     Route: 058
     Dates: start: 20090512, end: 20110804

REACTIONS (1)
  - BREAST CANCER FEMALE [None]
